FAERS Safety Report 4980436-0 (Version None)
Quarter: 2006Q2

REPORT INFORMATION
  Report Type: 
  Country: None (occurrence: None)
  Receive Date: 20060424
  Receipt Date: 20060412
  Transmission Date: 20061013
  Serious: Yes (Other)
  Sender: FDA-Public Use
  Company Number: JP-JPN-A200601182

PATIENT
  Sex: Male

DRUGS (7)
  1. FLUTIDE DISKUS [Suspect]
     Dosage: 200MCG TWICE PER DAY
     Route: 055
     Dates: start: 20060402
  2. THEO-DUR [Concomitant]
     Route: 048
  3. PREDONINE [Concomitant]
     Route: 065
  4. MEVALOTIN [Concomitant]
     Route: 048
  5. AMLODIN [Concomitant]
     Route: 048
  6. ASPIRIN [Concomitant]
     Route: 048
  7. CATAPRES [Concomitant]
     Route: 048

REACTIONS (1)
  - LOSS OF CONSCIOUSNESS [None]
